FAERS Safety Report 24081142 (Version 3)
Quarter: 2024Q4

REPORT INFORMATION
  Report Type: Spontaneous
  Country: US (occurrence: US)
  Receive Date: 20240711
  Receipt Date: 20241023
  Transmission Date: 20250115
  Serious: Yes (Hospitalization, Other)
  Sender: BIOMARIN
  Company Number: US-SA-SAC20240705000597

PATIENT

DRUGS (1)
  1. LARONIDASE [Suspect]
     Active Substance: LARONIDASE
     Indication: Mucopolysaccharidosis I
     Dosage: 8.7 (UNITS: UNKNOWN)  QW
     Route: 042
     Dates: start: 20230220

REACTIONS (7)
  - Viral infection [Recovering/Resolving]
  - Corneal opacity [Not Recovered/Not Resolved]
  - Poor peripheral circulation [Recovering/Resolving]
  - Joint stiffness [Not Recovered/Not Resolved]
  - Cyanosis [Recovering/Resolving]
  - Drug hypersensitivity [Recovered/Resolved]
  - Rash erythematous [Recovered/Resolved]

NARRATIVE: CASE EVENT DATE: 20230101
